FAERS Safety Report 5184538-8 (Version None)
Quarter: 2006Q4

REPORT INFORMATION
  Report Type: 
  Country: None (occurrence: None)
  Receive Date: 20061220
  Receipt Date: 20060314
  Transmission Date: 20070319
  Serious: No
  Sender: FDA-Public Use
  Company Number: US-GLAXOSMITHKLINE-A0597436A

PATIENT
  Age: 56 Year
  Sex: Female

DRUGS (2)
  1. NICODERM CQ [Suspect]
     Indication: DRUG USE FOR UNKNOWN INDICATION
     Dates: start: 20060301, end: 20060311
  2. NICORETTE [Suspect]
     Dosage: 4MG UNKNOWN
     Dates: start: 20060301, end: 20060301

REACTIONS (3)
  - APPLICATION SITE ERYTHEMA [None]
  - DEPRESSION [None]
  - DRUG INEFFECTIVE [None]
